FAERS Safety Report 8300368-X (Version None)
Quarter: 2012Q2

REPORT INFORMATION
  Report Type: 
  Country: None (occurrence: None)
  Receive Date: 20120420
  Receipt Date: 20120412
  Transmission Date: 20120825
  Serious: Yes (Hospitalization)
  Sender: FDA-Public Use
  Company Number: CN-JNJFOC-20110904383

PATIENT
  Sex: Male
  Weight: 73 kg

DRUGS (5)
  1. SULFASALAZINE [Concomitant]
     Route: 048
     Dates: start: 20090921
  2. LORNOXICAM [Concomitant]
     Route: 048
     Dates: start: 20090921
  3. GOLIMUMAB [Suspect]
     Route: 058
     Dates: start: 20110816
  4. GOLIMUMAB [Suspect]
     Indication: ANKYLOSING SPONDYLITIS
     Route: 058
     Dates: start: 20111108
  5. GOLIMUMAB [Suspect]
     Route: 058
     Dates: start: 20101208

REACTIONS (1)
  - EPISTAXIS [None]
